FAERS Safety Report 14475477 (Version 1)
Quarter: 2018Q1

REPORT INFORMATION
  Report Type: Report from Study
  Country: US (occurrence: US)
  Receive Date: 20180201
  Receipt Date: 20180201
  Transmission Date: 20180509
  Serious: Yes (Hospitalization)
  Sender: FDA-Public Use
  Company Number: US-TEVA-788635USA

PATIENT
  Sex: Female

DRUGS (10)
  1. LASIX [Concomitant]
     Active Substance: FUROSEMIDE
  2. TRAMADOL. [Concomitant]
     Active Substance: TRAMADOL
  3. FUROSEMIDE. [Concomitant]
     Active Substance: FUROSEMIDE
  4. NEURONTIN [Concomitant]
     Active Substance: GABAPENTIN
  5. ADVIL [Concomitant]
     Active Substance: IBUPROFEN
  6. COPAXONE [Suspect]
     Active Substance: GLATIRAMER ACETATE
     Indication: MULTIPLE SCLEROSIS
     Dosage: PREFILLED SYRINGE
     Route: 058
     Dates: start: 20150701
  7. BACLOFEN. [Concomitant]
     Active Substance: BACLOFEN
  8. NALTREXONE [Concomitant]
     Active Substance: NALTREXONE
  9. TYLENOL [Concomitant]
     Active Substance: ACETAMINOPHEN
  10. LEVOFLOXACIN. [Concomitant]
     Active Substance: LEVOFLOXACIN

REACTIONS (1)
  - Nephrolithiasis [Not Recovered/Not Resolved]
